FAERS Safety Report 9995777 (Version 2)
Quarter: 2014Q1

REPORT INFORMATION
  Report Type: Spontaneous
  Country: US (occurrence: US)
  Receive Date: 20140311
  Receipt Date: 20140311
  Transmission Date: 20141002
  Serious: Yes (Death, Disabling, Other)
  Sender: FDA-Public Use
  Company Number: US-009507513-1403USA003818

PATIENT
  Sex: Male

DRUGS (5)
  1. JANUMET [Suspect]
     Dosage: UNK
     Route: 048
     Dates: start: 2010, end: 201201
  2. JANUVIA [Suspect]
     Dosage: UNK
     Route: 048
     Dates: start: 2010, end: 201201
  3. BYETTA [Suspect]
     Dosage: UNK
     Dates: start: 2010, end: 201201
  4. VICTOZA [Suspect]
     Dosage: UNK
     Dates: start: 2010, end: 201201
  5. ONGLYZA [Suspect]
     Dosage: UNK
     Dates: start: 2010, end: 201201

REACTIONS (2)
  - Pancreatic carcinoma [Not Recovered/Not Resolved]
  - Death [Fatal]
